FAERS Safety Report 9010448 (Version 1)
Quarter: 2013Q1

REPORT INFORMATION
  Report Type: Spontaneous
  Country: FR (occurrence: FR)
  Receive Date: 20130109
  Receipt Date: 20130109
  Transmission Date: 20140127
  Serious: Yes (Other)
  Sender: FDA-Public Use
  Company Number: FR-ROCHE-1177628

PATIENT
  Age: 53 Year
  Sex: Female

DRUGS (4)
  1. HERCEPTIN [Suspect]
     Indication: BREAST CANCER
     Route: 042
     Dates: start: 20120920
  2. HERCEPTIN [Suspect]
     Route: 042
     Dates: start: 20121012, end: 20121012
  3. DOCETAXEL [Suspect]
     Indication: BREAST CANCER
     Dosage: DRUG REPORTED AS DOCETAXEL HOSPIRA
     Route: 042
     Dates: start: 20120920
  4. DOCETAXEL [Suspect]
     Dosage: DRUG REPORTED AS DOCETAXEL HOSPIRA
     Route: 042
     Dates: start: 20121012, end: 20121012

REACTIONS (1)
  - Colitis [Recovered/Resolved]
